FAERS Safety Report 10229485 (Version 5)
Quarter: 2015Q3

REPORT INFORMATION
  Report Type: Report from Study
  Country: BR (occurrence: BR)
  Receive Date: 20140611
  Receipt Date: 20150810
  Transmission Date: 20151125
  Serious: Yes (Other)
  Sender: FDA-Public Use
  Company Number: PHHY2014BR071302

PATIENT
  Age: 25 Year
  Sex: Female
  Weight: 50 kg

DRUGS (20)
  1. ZOTEON PODHALER [Suspect]
     Active Substance: TOBRAMYCIN
     Indication: CYSTIC FIBROSIS
  2. MONTELAIR [Concomitant]
     Active Substance: MONTELUKAST SODIUM
     Indication: PROPHYLAXIS
     Dosage: 1 DF, DAILY
     Route: 048
  3. CREON [Concomitant]
     Active Substance: PANCRELIPASE AMYLASE\PANCRELIPASE LIPASE\PANCRELIPASE PROTEASE
     Dosage: 10 IU, UNK
     Route: 048
  4. PULMOZYME [Concomitant]
     Active Substance: DORNASE ALFA
     Indication: FLUID RETENTION
     Dosage: 1 DF, QD
     Route: 055
  5. ZOTEON PODHALER [Suspect]
     Active Substance: TOBRAMYCIN
     Indication: PSEUDOMONAS INFECTION
     Dosage: 4 DF, BID (4 CAPSULES IN THE MORNING AND 4 CAPSULES AT NIGHT)
     Route: 055
     Dates: start: 20140429, end: 20140624
  6. DOMPERIDONE [Concomitant]
     Active Substance: DOMPERIDONE
     Indication: GASTRIC DISORDER
     Dosage: 1 DF, QD
     Route: 048
  7. PULMOZYME [Concomitant]
     Active Substance: DORNASE ALFA
     Indication: CYSTIC FIBROSIS
  8. PANCREATIC ENZYMES [Concomitant]
     Active Substance: UNSPECIFIED INGREDIENT
     Indication: PANCREATIC INSUFFICIENCY
     Dosage: 4 DF, DAILY (FORMULATION 25000)
     Route: 065
  9. PANCREATIC ENZYMES [Concomitant]
     Active Substance: UNSPECIFIED INGREDIENT
     Dosage: 2 DF, DAILY IN THE BREAKFAST TIME AND IN THE SNACK TIME (FORMULATION 1000)
     Route: 065
  10. DOMPERIDONE [Concomitant]
     Active Substance: DOMPERIDONE
     Indication: REFLUX GASTRITIS
  11. NOEX [Concomitant]
     Active Substance: BUDESONIDE
     Indication: SINUSITIS
     Dosage: 32 MG, BID (2 PUFFS IN EACH NOSTRIL)
     Route: 055
  12. ALENIA                             /01538101/ [Concomitant]
     Active Substance: BUDESONIDE\FORMOTEROL FUMARATE
     Indication: ASTHMA
     Dosage: 1 DF, Q12H
     Route: 055
  13. SALBUTAMOL [Concomitant]
     Active Substance: ALBUTEROL
     Indication: PRODUCT USED FOR UNKNOWN INDICATION
     Dosage: 2 DF, TID (2 PUFF)
     Route: 055
  14. OMEPRAZOLE. [Concomitant]
     Active Substance: OMEPRAZOLE
     Indication: GASTRITIS
  15. TOBRAMYCIN. [Concomitant]
     Active Substance: TOBRAMYCIN
     Indication: PSEUDOMONAS INFECTION
     Dosage: 1 DF, EVERY 12 HRS
     Route: 055
  16. CERAZETTE [Concomitant]
     Active Substance: DESOGESTREL
     Indication: MENSTRUAL DISORDER
     Dosage: 1 DF, QD
     Route: 065
  17. OMEPRAZOLE. [Concomitant]
     Active Substance: OMEPRAZOLE
     Indication: GASTRIC DISORDER
     Dosage: 1 DF, DAILY
     Route: 048
  18. AZITHROMYCIN [Concomitant]
     Active Substance: AZITHROMYCIN ANHYDROUS
     Indication: LOWER RESPIRATORY TRACT INFLAMMATION
     Dosage: 1 DF, TIW
     Route: 048
  19. NOEX [Concomitant]
     Active Substance: BUDESONIDE
     Dosage: 28 MG, BID (2 PUFFS IN EACH NOSTRIL)
     Route: 045
  20. CREON [Concomitant]
     Active Substance: PANCRELIPASE AMYLASE\PANCRELIPASE LIPASE\PANCRELIPASE PROTEASE
     Indication: PRODUCT USED FOR UNKNOWN INDICATION
     Dosage: 2 DF, (LUNCH AND DINNER)
     Route: 048

REACTIONS (11)
  - Asthma [Recovered/Resolved]
  - Increased bronchial secretion [Recovered/Resolved]
  - Abasia [Recovered/Resolved]
  - Cough [Recovered/Resolved]
  - Aphonia [Recovered/Resolved]
  - Dyspnoea [Recovered/Resolved]
  - Obstructive airways disorder [Recovered/Resolved]
  - Skin discolouration [Recovered/Resolved]
  - Dysphonia [Recovered/Resolved]
  - Dysphonia [Recovered/Resolved]
  - Fatigue [Recovered/Resolved]

NARRATIVE: CASE EVENT DATE: 2014
